FAERS Safety Report 5519289-0 (Version None)
Quarter: 2007Q4

REPORT INFORMATION
  Report Type: 
  Country: None (occurrence: None)
  Receive Date: 20071116
  Receipt Date: 20071106
  Transmission Date: 20080405
  Serious: Yes (Hospitalization)
  Sender: FDA-Public Use
  Company Number: FR-AVENTIS-200713521FR

PATIENT
  Age: 32 Year
  Sex: Male

DRUGS (13)
  1. RIFATER [Suspect]
     Indication: TUBERCULOSIS
     Route: 048
     Dates: start: 20071007
  2. RIFINAH [Suspect]
     Indication: TUBERCULOSIS
     Route: 048
     Dates: end: 20071006
  3. KETAMINE HCL [Suspect]
     Indication: DRUG ABUSE
     Route: 048
     Dates: start: 20071005, end: 20071005
  4. ETHAMBUTOL HYDROCHLORIDE [Concomitant]
     Indication: TUBERCULOSIS
  5. TRAMADOL HCL [Concomitant]
     Indication: DRUG USE FOR UNKNOWN INDICATION
     Route: 048
  6. TRUVADA [Concomitant]
     Indication: DRUG USE FOR UNKNOWN INDICATION
  7. SUSTIVA [Concomitant]
     Indication: DRUG USE FOR UNKNOWN INDICATION
     Route: 048
  8. FUZEON [Concomitant]
     Indication: DRUG USE FOR UNKNOWN INDICATION
  9. GRANOCYTE [Concomitant]
     Indication: DRUG USE FOR UNKNOWN INDICATION
  10. WELLVONE [Concomitant]
     Indication: DRUG USE FOR UNKNOWN INDICATION
     Route: 048
  11. NODEX [Concomitant]
     Indication: DRUG USE FOR UNKNOWN INDICATION
     Route: 048
  12. LEXOMIL [Concomitant]
     Indication: DRUG USE FOR UNKNOWN INDICATION
     Route: 048
  13. PARACETAMOL [Concomitant]
     Indication: DRUG USE FOR UNKNOWN INDICATION

REACTIONS (6)
  - ANOREXIA [None]
  - HEPATITIS [None]
  - HEPATOCELLULAR DAMAGE [None]
  - MALAISE [None]
  - PYREXIA [None]
  - WEIGHT DECREASED [None]
